FAERS Safety Report 9942147 (Version 1)
Quarter: 2014Q1

REPORT INFORMATION
  Report Type: Report from Study
  Country: US (occurrence: US)
  Receive Date: 20140303
  Receipt Date: 20140303
  Transmission Date: 20141002
  Serious: No
  Sender: FDA-Public Use
  Company Number: US-ABBVIE-13P-163-1041383-00

PATIENT
  Age: 71 Year
  Sex: Male

DRUGS (11)
  1. HUMIRA [Suspect]
     Indication: ANKYLOSING SPONDYLITIS
     Route: 058
     Dates: start: 200612
  2. HUMIRA [Suspect]
     Indication: CROHN^S DISEASE
  3. HUMIRA [Suspect]
     Indication: ANKYLOSING SPONDYLITIS
  4. HUMIRA [Suspect]
     Indication: CROHN^S DISEASE
  5. ALLEGRA [Concomitant]
     Indication: PRODUCT USED FOR UNKNOWN INDICATION
  6. ALTACE [Concomitant]
     Indication: PRODUCT USED FOR UNKNOWN INDICATION
  7. LIPITOR [Concomitant]
     Indication: PRODUCT USED FOR UNKNOWN INDICATION
  8. ZIAC [Concomitant]
     Indication: PRODUCT USED FOR UNKNOWN INDICATION
  9. FLOVENT [Concomitant]
     Indication: ASTHMA
  10. PROAIR [Concomitant]
     Indication: ASTHMA
  11. FLUTICASONE [Concomitant]
     Indication: ASTHMA
     Dosage: SPRAY
     Route: 045

REACTIONS (9)
  - Piriformis syndrome [Unknown]
  - Injection site pain [Recovered/Resolved]
  - Gastrooesophageal reflux disease [Recovered/Resolved]
  - Arthritis [Unknown]
  - Pneumonia [Unknown]
  - Crohn^s disease [Unknown]
  - Stress [Unknown]
  - Piriformis syndrome [Unknown]
  - Pain [Unknown]
